FAERS Safety Report 5145749-0 (Version None)
Quarter: 2006Q4

REPORT INFORMATION
  Report Type: 
  Country: None (occurrence: None)
  Receive Date: 20060915
  Receipt Date: 20060619
  Transmission Date: 20070319
  Serious: No
  Sender: FDA-Public Use
  Company Number: 2006RL000224

PATIENT
  Age: 82 Year
  Sex: Female
  Weight: 56.6996 kg

DRUGS (5)
  1. OMACOR [Suspect]
     Indication: BLOOD CHOLESTEROL INCREASED
     Dosage: 2 GM;BID;PO
     Route: 048
     Dates: start: 20060101
  2. COUMADIN [Concomitant]
  3. ZOLOFT [Concomitant]
  4. ADVAIR DISKUS 100/50 [Concomitant]
  5. TAPAZOLE [Concomitant]

REACTIONS (2)
  - DIZZINESS [None]
  - THERAPEUTIC RESPONSE UNEXPECTED [None]
